FAERS Safety Report 9870116 (Version 1)
Quarter: 2014Q1

REPORT INFORMATION
  Report Type: Spontaneous
  Country: US (occurrence: None)
  Receive Date: 20140204
  Receipt Date: 20140204
  Transmission Date: 20141002
  Serious: Yes (Other)
  Sender: FDA-Public Use
  Company Number: None

PATIENT
  Age: 11 Year
  Sex: Male
  Weight: 37.65 kg

DRUGS (1)
  1. HIZENTRA [Suspect]
     Indication: IMMUNE SYSTEM DISORDER
     Dosage: 20 ML  ONCE WEEKLY  SUBCUTANEOUS
     Route: 058
     Dates: start: 20130906, end: 20140202

REACTIONS (1)
  - Infusion site swelling [None]
